FAERS Safety Report 6007912-6 (Version None)
Quarter: 2008Q4

REPORT INFORMATION
  Report Type: 
  Country: None (occurrence: None)
  Receive Date: 20081217
  Receipt Date: 20080610
  Transmission Date: 20090506
  Serious: No
  Sender: FDA-Public Use
  Company Number: US-ASTRAZENECA-2008UW11617

PATIENT
  Age: 62 Year
  Sex: Female
  Weight: 78.5 kg

DRUGS (7)
  1. CRESTOR [Suspect]
     Indication: BLOOD CHOLESTEROL INCREASED
     Route: 048
  2. GABAPENTIN [Concomitant]
  3. ZYRTEC [Concomitant]
  4. AVAPRO [Concomitant]
  5. HYDROCHLOROTHIAZIDE [Concomitant]
  6. NASONEX [Concomitant]
  7. BUTABATAL [Concomitant]

REACTIONS (6)
  - ABDOMINAL PAIN [None]
  - ARTHRALGIA [None]
  - BONE PAIN [None]
  - HALLUCINATION [None]
  - INFLUENZA LIKE ILLNESS [None]
  - INSOMNIA [None]
